FAERS Safety Report 24852225 (Version 1)
Quarter: 2025Q1

REPORT INFORMATION
  Report Type: Spontaneous
  Country: US (occurrence: US)
  Receive Date: 20250116
  Receipt Date: 20250116
  Transmission Date: 20250408
  Serious: No
  Sender: SANOFI AVENTIS
  Company Number: US-SA-2025SA012734

PATIENT
  Sex: Male
  Weight: 20 kg

DRUGS (7)
  1. DUPIXENT [Suspect]
     Active Substance: DUPILUMAB
     Indication: Dermatitis atopic
     Dosage: 300.000MG Q4W
     Route: 058
  2. KETOCONAZOLE [Concomitant]
     Active Substance: KETOCONAZOLE
  3. HYDROCORTISONE [Concomitant]
     Active Substance: HYDROCORTISONE
  4. DUPIXENT [Concomitant]
     Active Substance: DUPILUMAB
  5. OMEPRAZOLE [Concomitant]
     Active Substance: OMEPRAZOLE
  6. VYVANSE [Concomitant]
     Active Substance: LISDEXAMFETAMINE DIMESYLATE
  7. ESTRADIOL [Concomitant]
     Active Substance: ESTRADIOL

REACTIONS (2)
  - Dermatitis atopic [Unknown]
  - Product dose omission issue [Unknown]
